FAERS Safety Report 4784863-6 (Version None)
Quarter: 2005Q3

REPORT INFORMATION
  Report Type: 
  Country: None (occurrence: None)
  Receive Date: 20050930
  Receipt Date: 20050926
  Transmission Date: 20060218
  Serious: Yes (Other)
  Sender: FDA-Public Use
  Company Number: PHEH2005US10753

PATIENT
  Sex: Female

DRUGS (1)
  1. TRILEPTAL [Suspect]
     Indication: PARTIAL SEIZURES
     Dosage: 900 UNK, QD

REACTIONS (4)
  - ASTHENIA [None]
  - DEHYDRATION [None]
  - NAUSEA [None]
  - URINARY RETENTION [None]
